FAERS Safety Report 9369443 (Version 6)
Quarter: 2013Q4

REPORT INFORMATION
  Report Type: Report from Study
  Country: US (occurrence: US)
  Receive Date: 20130626
  Receipt Date: 20131223
  Transmission Date: 20140711
  Serious: Yes (Hospitalization)
  Sender: FDA-Public Use
  Company Number: US-JNJFOC-20130611964

PATIENT
  Age: 17 Year
  Sex: Male
  Weight: 52.9 kg

DRUGS (6)
  1. REMICADE [Suspect]
     Indication: CROHN^S DISEASE
     Route: 042
     Dates: start: 20130403, end: 20130501
  2. REMICADE [Suspect]
     Indication: CROHN^S DISEASE
     Route: 042
     Dates: start: 20111228
  3. HUMIRA [Concomitant]
     Route: 065
     Dates: start: 20130611
  4. HUMIRA [Concomitant]
     Route: 065
     Dates: start: 201305
  5. METHOTREXATE [Concomitant]
     Route: 065
  6. PROBIOTICS [Concomitant]
     Route: 065

REACTIONS (2)
  - Small intestinal perforation [Recovered/Resolved]
  - Dehydration [Recovered/Resolved]
